FAERS Safety Report 4489289-0 (Version None)
Quarter: 2004Q4

REPORT INFORMATION
  Report Type: 
  Country: None (occurrence: None)
  Receive Date: 20041026
  Receipt Date: 20041013
  Transmission Date: 20050328
  Serious: Yes (Hospitalization)
  Sender: FDA-Public Use
  Company Number: 2004UW19554

PATIENT
  Age: 81 Year
  Sex: Female

DRUGS (5)
  1. ELAVIL [Suspect]
     Indication: PAIN
     Dosage: 10 MG DAILY PO
     Route: 048
     Dates: start: 20040907, end: 20040907
  2. ELAVIL [Suspect]
     Indication: PAIN
     Dosage: 2.5 MG BID PO
     Route: 048
     Dates: start: 20040909, end: 20040909
  3. MILNACIPRAN HCL [Suspect]
     Indication: PAIN
     Dosage: 2 DF BID PO
     Route: 048
     Dates: start: 20040903, end: 20040906
  4. OCHI-EKKI-TO [Concomitant]
  5. CARBAMAZEPINE [Concomitant]

REACTIONS (17)
  - ANOREXIA [None]
  - ANURIA [None]
  - BLOOD CHLORIDE DECREASED [None]
  - BLOOD POTASSIUM DECREASED [None]
  - BLOOD SODIUM DECREASED [None]
  - CARCINOEMBRYONIC ANTIGEN INCREASED [None]
  - CHEST X-RAY ABNORMAL [None]
  - DELIRIUM [None]
  - DEPRESSED LEVEL OF CONSCIOUSNESS [None]
  - DIZZINESS [None]
  - DRUG INTERACTION [None]
  - ELECTROLYTE IMBALANCE [None]
  - FALL [None]
  - INAPPROPRIATE ANTIDIURETIC HORMONE SECRETION [None]
  - ORTHOSTATIC HYPOTENSION [None]
  - SOMNOLENCE [None]
  - URINARY RETENTION [None]
